FAERS Safety Report 18028296 (Version 1)
Quarter: 2020Q3

REPORT INFORMATION
  Report Type: Report from Study
  Country: BE (occurrence: BE)
  Receive Date: 20200715
  Receipt Date: 20200715
  Transmission Date: 20201103
  Serious: Yes (Hospitalization)
  Sender: FDA-Public Use
  Company Number: BE-CELGENEUS-BEL-20181201813

PATIENT
  Age: 66 Year
  Sex: Female
  Weight: 57 kg

DRUGS (6)
  1. FLUDARABINE [Suspect]
     Active Substance: FLUDARABINE PHOSPHATE
     Indication: NON-HODGKIN^S LYMPHOMA
     Dosage: 48 MILLIGRAM
     Route: 041
     Dates: start: 20181107, end: 20181109
  2. TOCILIZUMAB. [Suspect]
     Active Substance: TOCILIZUMAB
     Indication: NON-HODGKIN^S LYMPHOMA
     Route: 065
  3. TOCILIZUMAB. [Suspect]
     Active Substance: TOCILIZUMAB
     Indication: TRANSAMINASES INCREASED
     Route: 041
     Dates: start: 20181205, end: 20181205
  4. JCAR017 [Suspect]
     Active Substance: LISOCABTAGENE MARALEUCEL
     Indication: NON-HODGKIN^S LYMPHOMA
     Dosage: 113.2 X10^6 CD8+ CELLS?151.6 X10^6 CD4+ CELLS
     Route: 041
     Dates: start: 20181112, end: 20181112
  5. JCAR017 [Suspect]
     Active Substance: LISOCABTAGENE MARALEUCEL
     Dosage: 151.6 X10^6
     Route: 041
     Dates: start: 20181112
  6. CYCLOPHOSPHAMIDE. [Suspect]
     Active Substance: CYCLOPHOSPHAMIDE
     Indication: NON-HODGKIN^S LYMPHOMA
     Dosage: 480 MILLIGRAM
     Route: 041
     Dates: start: 20181107, end: 20181109

REACTIONS (1)
  - Transaminases increased [Recovered/Resolved with Sequelae]

NARRATIVE: CASE EVENT DATE: 20181204
